FAERS Safety Report 20111396 (Version 1)
Quarter: 2021Q4

REPORT INFORMATION
  Report Type: Spontaneous
  Country: US (occurrence: US)
  Receive Date: 20211125
  Receipt Date: 20211125
  Transmission Date: 20220303
  Serious: No
  Sender: FDA-Public Use
  Company Number: US-BAUSCH-BL-2021-038076

PATIENT
  Age: 91 Year
  Sex: Female

DRUGS (2)
  1. ALAWAY PRESERVATIVE FREE [Suspect]
     Active Substance: KETOTIFEN FUMARATE
     Indication: Conjunctivitis allergic
     Route: 047
     Dates: start: 20211116, end: 20211116
  2. THERATEARS [Concomitant]
     Active Substance: CARBOXYMETHYLCELLULOSE SODIUM
     Indication: Dry eye
     Dates: start: 20211115

REACTIONS (3)
  - Headache [Unknown]
  - Vision blurred [Unknown]
  - Head discomfort [Unknown]

NARRATIVE: CASE EVENT DATE: 20211116
